FAERS Safety Report 17240060 (Version 2)
Quarter: 2020Q2

REPORT INFORMATION
  Report Type: Spontaneous
  Country: CA (occurrence: CA)
  Receive Date: 20200107
  Receipt Date: 20200619
  Transmission Date: 20200713
  Serious: Yes (Other)
  Sender: FDA-Public Use
  Company Number: CA-ROCHE-2509830

PATIENT
  Age: 83 Year
  Sex: Female

DRUGS (10)
  1. METHOTREXATE. [Suspect]
     Active Substance: METHOTREXATE
     Indication: RHEUMATOID ARTHRITIS
     Route: 065
  2. METHOTREXATE. [Suspect]
     Active Substance: METHOTREXATE
     Route: 065
  3. ACTEMRA [Suspect]
     Active Substance: TOCILIZUMAB
     Indication: PRODUCT USED FOR UNKNOWN INDICATION
     Route: 042
  4. ORENCIA [Suspect]
     Active Substance: ABATACEPT
     Route: 042
  5. ACTEMRA [Suspect]
     Active Substance: TOCILIZUMAB
     Indication: PRODUCT USED FOR UNKNOWN INDICATION
     Dosage: THERAPY DURATION:5.0 YEARS
     Route: 065
  6. ORENCIA [Suspect]
     Active Substance: ABATACEPT
     Indication: PRODUCT USED FOR UNKNOWN INDICATION
     Dosage: THERAPY DURATION:3.0 YEARS
     Route: 042
  7. MORPHINE [Concomitant]
     Active Substance: MORPHINE
     Indication: PRODUCT USED FOR UNKNOWN INDICATION
     Route: 065
  8. ENBREL [Suspect]
     Active Substance: ETANERCEPT
     Indication: RHEUMATOID ARTHRITIS
     Dosage: THERAPY DURATION:4.0 YEARS
     Route: 058
  9. DILAUDID [Concomitant]
     Active Substance: HYDROMORPHONE HYDROCHLORIDE
     Indication: PRODUCT USED FOR UNKNOWN INDICATION
     Route: 065
  10. XELJANZ [Concomitant]
     Active Substance: TOFACITINIB CITRATE
     Indication: PRODUCT USED FOR UNKNOWN INDICATION
     Route: 065

REACTIONS (22)
  - Burning sensation [Unknown]
  - Hand deformity [Unknown]
  - Therapeutic product effect incomplete [Unknown]
  - Pain [Unknown]
  - Drug hypersensitivity [Unknown]
  - Mobility decreased [Unknown]
  - Contraindicated product administered [Unknown]
  - Drug ineffective [Unknown]
  - Headache [Unknown]
  - Infection [Unknown]
  - Rheumatoid arthritis [Unknown]
  - Therapeutic product effect decreased [Unknown]
  - Toe amputation [Unknown]
  - Impaired healing [Unknown]
  - Pneumonitis [Unknown]
  - Bone disorder [Unknown]
  - Gait disturbance [Unknown]
  - Arthritis [Unknown]
  - Loss of personal independence in daily activities [Unknown]
  - Lung disorder [Unknown]
  - Synovitis [Unknown]
  - Off label use [Unknown]
